FAERS Safety Report 10507889 (Version 1)
Quarter: 2014Q4

REPORT INFORMATION
  Report Type: Spontaneous
  Country: US (occurrence: US)
  Receive Date: 20141009
  Receipt Date: 20141009
  Transmission Date: 20150528
  Serious: Yes (Other)
  Sender: FDA-Public Use
  Company Number: PHHY2014US131727

PATIENT

DRUGS (3)
  1. SOTALOL. [Suspect]
     Active Substance: SOTALOL
     Dosage: (MATERNAL DOSE 120 MG TWICE DAILY)
     Route: 064
  2. SOTALOL. [Suspect]
     Active Substance: SOTALOL
     Dosage: (MATERNAL DOSE 280 MG TWICE DAILY)
     Route: 064
  3. SOTALOL. [Suspect]
     Active Substance: SOTALOL
     Dosage: (MATERNAL DOSE 240 MG TWICE DAILY)
     Route: 064

REACTIONS (2)
  - Foetal exposure during pregnancy [Unknown]
  - Foetal distress syndrome [Unknown]
